FAERS Safety Report 9387131 (Version 1)
Quarter: 2013Q3

REPORT INFORMATION
  Report Type: Spontaneous
  Country: US (occurrence: US)
  Receive Date: 20130708
  Receipt Date: 20130708
  Transmission Date: 20140515
  Serious: Yes (Other)
  Sender: FDA-Public Use
  Company Number: US-ROCHE-1244083

PATIENT
  Sex: Female

DRUGS (1)
  1. KADCYLA [Suspect]
     Indication: BREAST CANCER
     Route: 065
     Dates: start: 201111

REACTIONS (3)
  - Portal hypertension [Unknown]
  - Splenomegaly [Unknown]
  - Disease progression [Unknown]
